FAERS Safety Report 6037749-3 (Version None)
Quarter: 2009Q1

REPORT INFORMATION
  Report Type: 
  Country: None (occurrence: None)
  Receive Date: 20090114
  Receipt Date: 20081223
  Transmission Date: 20090719
  Serious: Yes (Death)
  Sender: FDA-Public Use
  Company Number: US-MERCK-0812USA05179

PATIENT
  Age: 50 Year
  Sex: Male

DRUGS (8)
  1. ZOCOR [Suspect]
     Route: 048
  2. AMLODIPINE [Suspect]
     Route: 048
  3. ZESTRIL [Suspect]
     Route: 048
  4. METOPROLOL [Suspect]
     Route: 048
  5. COLCHICINE [Suspect]
     Route: 048
  6. GLIPIZIDE [Suspect]
     Route: 048
  7. CLOPIDOGREL BISULFATE [Suspect]
     Route: 048
  8. PIOGLITAZONE HYDROCHLORIDE [Suspect]
     Route: 065

REACTIONS (1)
  - COMPLETED SUICIDE [None]
